FAERS Safety Report 6065192-X (Version None)
Quarter: 2009Q1

REPORT INFORMATION
  Report Type: 
  Country: None (occurrence: None)
  Receive Date: 20090130
  Receipt Date: 20090119
  Transmission Date: 20090719
  Serious: Yes (Hospitalization)
  Sender: FDA-Public Use
  Company Number: GXKR2009FI01059

PATIENT
  Age: 65 Year
  Sex: Male

DRUGS (7)
  1. ENALAPRIL MALEATE [Suspect]
     Dosage: 20 MG, DAILY, ORAL
     Route: 048
     Dates: end: 20090107
  2. METFORMIN HCL [Suspect]
     Dosage: 2000 MG, DAILY, ORAL
     Route: 048
     Dates: end: 20090107
  3. BISOPROLOL (BISOPROLOL) TABLET, 5MG [Suspect]
     Dosage: 7.5 MG, DAILY
  4. AMLODIPINE [Suspect]
     Dosage: 50 MG, DAY
  5. FUROSEMIDE [Suspect]
     Dosage: 60 MG, DAILY
  6. SIMVASTATIN [Concomitant]
  7. PRIMASPAN (ACETYLSALICYLIC ACID) [Concomitant]

REACTIONS (8)
  - ABDOMINAL DISTENSION [None]
  - ABDOMINAL PAIN [None]
  - BRADYCARDIA [None]
  - DRUG INTERACTION [None]
  - HAEMODIALYSIS [None]
  - HYPOTENSION [None]
  - METABOLIC ACIDOSIS [None]
  - TRACHEOSTOMY [None]
